FAERS Safety Report 5061076-4 (Version None)
Quarter: 2006Q3

REPORT INFORMATION
  Report Type: 
  Country: None (occurrence: None)
  Receive Date: 20060720
  Receipt Date: 20060710
  Transmission Date: 20061208
  Serious: Yes (Disabling)
  Sender: FDA-Public Use
  Company Number: 2006085917

PATIENT
  Age: 75 Year
  Sex: Male
  Weight: 80.7403 kg

DRUGS (2)
  1. LIPITOR [Suspect]
     Indication: BLOOD CHOLESTEROL
     Dosage: 10 MG (10 MG, 1 IN 1 D)
     Dates: end: 20060301
  2. METFORMIN [Concomitant]

REACTIONS (2)
  - DYSSTASIA [None]
  - GAIT DISTURBANCE [None]
